FAERS Safety Report 5154935-5 (Version None)
Quarter: 2006Q4

REPORT INFORMATION
  Report Type: 
  Country: None (occurrence: None)
  Receive Date: 20061117
  Receipt Date: 20061117
  Transmission Date: 20070319
  Serious: No
  Sender: FDA-Public Use
  Company Number: None

PATIENT
  Age: 70 Year
  Sex: Male
  Weight: 77.1115 kg

DRUGS (10)
  1. ACETAMINOPHEN [Suspect]
     Indication: PAIN
     Dosage: 500 MG 6-8 TABS DAILY ORALLY
     Route: 048
  2. LEVOXYL .2 [Concomitant]
  3. FERROUS SULFATE TAB [Concomitant]
  4. GINKO [Concomitant]
  5. GINSENG [Concomitant]
  6. CALCIUM [Concomitant]
  7. VIT B COMPLEX [Concomitant]
  8. MVT [Concomitant]
  9. SAW PALMETO [Concomitant]
  10. ST. JOHNS WORT [Concomitant]

REACTIONS (2)
  - ABDOMINAL PAIN UPPER [None]
  - PHARYNGOLARYNGEAL PAIN [None]
